FAERS Safety Report 8262322-6 (Version None)
Quarter: 2012Q2

REPORT INFORMATION
  Report Type: 
  Country: None (occurrence: None)
  Receive Date: 20120405
  Receipt Date: 20120330
  Transmission Date: 20120825
  Serious: Yes (Hospitalization, Other)
  Sender: FDA-Public Use
  Company Number: US-PFIZER INC-2012082961

PATIENT
  Age: 19 Year
  Sex: Female

DRUGS (2)
  1. MISOPROSTOL [Suspect]
     Dosage: 30 DF, OF 200 UG
  2. TRIFLUOPERAZINE HYDROCHLORIDE [Suspect]
     Dosage: 4 DF, UNK
     Route: 048

REACTIONS (19)
  - UTERINE HYPERTONUS [None]
  - MULTIPLE DRUG OVERDOSE INTENTIONAL [None]
  - CHILLS [None]
  - ENDOMETRITIS [None]
  - HYPERTHERMIA [None]
  - SUICIDE ATTEMPT [None]
  - METABOLIC ACIDOSIS [None]
  - HYPOXIA [None]
  - DISCOMFORT [None]
  - RESPIRATORY RATE INCREASED [None]
  - RHABDOMYOLYSIS [None]
  - FEELING HOT [None]
  - DYSPNOEA [None]
  - HEART RATE INCREASED [None]
  - INTENTIONAL OVERDOSE [None]
  - FOETAL DEATH [None]
  - MATERNAL EXPOSURE DURING PREGNANCY [None]
  - RESTLESSNESS [None]
  - PLACENTAL DISORDER [None]
